FAERS Safety Report 20945408 (Version 1)
Quarter: 2022Q2

REPORT INFORMATION
  Report Type: Spontaneous
  Country: US (occurrence: None)
  Receive Date: 20220609
  Receipt Date: 20220609
  Transmission Date: 20220721
  Serious: Yes (Other)
  Sender: FDA-Public Use
  Company Number: None

PATIENT
  Age: 59 Year
  Sex: Female
  Weight: 94.5 kg

DRUGS (19)
  1. VALACYCLOVIR [Suspect]
     Active Substance: VALACYCLOVIR HYDROCHLORIDE
     Indication: Herpes zoster
     Dosage: OTHER QUANTITY : 20 TABLET(S);?OTHER FREQUENCY : 2TABS BID;?
     Route: 048
     Dates: start: 20220606, end: 20220606
  2. SILVADENE [Suspect]
     Active Substance: SILVER SULFADIAZINE
  3. Lisinopril for AF and migraines [Concomitant]
  4. PEPCID [Concomitant]
     Active Substance: FAMOTIDINE
  5. ACIPHEX [Concomitant]
  6. NEXIUM [Concomitant]
     Active Substance: ESOMEPRAZOLE MAGNESIUM
  7. abilifify [Concomitant]
  8. EFFEXOR [Concomitant]
  9. trazadone [Concomitant]
  10. atarax [Concomitant]
  11. ESGIC [Concomitant]
     Active Substance: ACETAMINOPHEN\BUTALBITAL\CAFFEINE
  12. AMERGE [Concomitant]
     Active Substance: NARATRIPTAN HYDROCHLORIDE
  13. B12 [Concomitant]
  14. bit D [Concomitant]
  15. GLUCOSAMINE [Concomitant]
  16. APPLE CIDER VINEGAR [Concomitant]
  17. MAGNESIUM [Concomitant]
  18. FISH OIL [Concomitant]
  19. DIETARY SUPPLEMENT\HERBALS\MILK THISTLE [Concomitant]
     Active Substance: DIETARY SUPPLEMENT\HERBALS\MILK THISTLE

REACTIONS (9)
  - Immunisation reaction [None]
  - Skin discolouration [None]
  - Pruritus [None]
  - Livedo reticularis [None]
  - Peripheral swelling [None]
  - Dry throat [None]
  - Paraesthesia [None]
  - Skin burning sensation [None]
  - Erythema [None]

NARRATIVE: CASE EVENT DATE: 20220606
